FAERS Safety Report 7494006-6 (Version None)
Quarter: 2011Q2

REPORT INFORMATION
  Report Type: 
  Country: None (occurrence: None)
  Receive Date: 20110520
  Receipt Date: 20110512
  Transmission Date: 20111010
  Serious: No
  Sender: FDA-Public Use
  Company Number: US-PFIZER INC-2011102841

PATIENT
  Sex: Female
  Weight: 70.3 kg

DRUGS (6)
  1. FLUCONAZOLE [Suspect]
     Indication: INFECTION
     Dosage: 150 MG, DAILY
     Route: 048
     Dates: start: 20110503, end: 20110507
  2. ATIVAN [Concomitant]
     Indication: ANXIETY
     Dosage: UNK
  3. ALLEGRA [Concomitant]
     Indication: HYPERSENSITIVITY
     Dosage: UNK
  4. PREVACID [Concomitant]
     Indication: GASTROOESOPHAGEAL REFLUX DISEASE
     Dosage: UNK
  5. SUDAFED 12 HOUR [Concomitant]
     Indication: HYPERSENSITIVITY
     Dosage: UNK
  6. CELEBREX [Concomitant]
     Indication: ARTHRITIS
     Dosage: UNK

REACTIONS (5)
  - DEPRESSION [None]
  - PRURITUS [None]
  - SOMNAMBULISM [None]
  - SOMNOLENCE [None]
  - DIZZINESS [None]
